FAERS Safety Report 25738756 (Version 1)
Quarter: 2025Q3

REPORT INFORMATION
  Report Type: Spontaneous
  Country: US (occurrence: US)
  Receive Date: 20250829
  Receipt Date: 20250829
  Transmission Date: 20251020
  Serious: No
  Sender: TAMARANG PHARMACEUTICALS
  Company Number: US-Tamarang, S.A.-2183441

PATIENT
  Age: 60 Year
  Sex: Female

DRUGS (10)
  1. ROCURONIUM BROMIDE [Suspect]
     Active Substance: ROCURONIUM BROMIDE
  2. FENTANYL [Concomitant]
     Active Substance: FENTANYL
  3. HYDROMORPHONE [Concomitant]
     Active Substance: HYDROMORPHONE
  4. METRONIDAZOLE [Concomitant]
     Active Substance: METRONIDAZOLE
  5. EPHEDRINE [Concomitant]
     Active Substance: EPHEDRINE
  6. MIDAZOLAM [Concomitant]
     Active Substance: MIDAZOLAM
  7. CEFAZOLIN SODIUM [Concomitant]
     Active Substance: CEFAZOLIN SODIUM
  8. DEXAMETHASONE [Concomitant]
     Active Substance: DEXAMETHASONE
  9. PROPOFOL [Concomitant]
     Active Substance: PROPOFOL
  10. LIDOCAINE [Concomitant]
     Active Substance: LIDOCAINE

REACTIONS (1)
  - Drug ineffective [Recovered/Resolved]
